FAERS Safety Report 20368258 (Version 1)
Quarter: 2022Q1

REPORT INFORMATION
  Report Type: Spontaneous
  Country: JP (occurrence: JP)
  Receive Date: 20220124
  Receipt Date: 20220124
  Transmission Date: 20220423
  Serious: Yes (Life-Threatening, Hospitalization)
  Sender: FDA-Public Use
  Company Number: None

PATIENT
  Age: 38 Year
  Sex: Male
  Weight: 42 kg

DRUGS (3)
  1. XULTOPHY 100/3.6 [Suspect]
     Active Substance: INSULIN DEGLUDEC\LIRAGLUTIDE
     Indication: Type 1 diabetes mellitus
     Dosage: 10DOSE,QD
     Route: 058
     Dates: start: 20211221
  2. METFORMIN HYDROCHLORIDE [Concomitant]
     Active Substance: METFORMIN HYDROCHLORIDE
     Indication: Type 1 diabetes mellitus
     Dosage: 250 MG, TID
     Route: 065
     Dates: start: 20211222
  3. ROSUVASTATIN [Concomitant]
     Active Substance: ROSUVASTATIN
     Dosage: UNK
     Route: 048
     Dates: start: 20211216, end: 20211223

REACTIONS (3)
  - Hepatitis acute [Recovering/Resolving]
  - Drug-induced liver injury [Recovering/Resolving]
  - Off label use [Unknown]

NARRATIVE: CASE EVENT DATE: 20211222
